FAERS Safety Report 9643385 (Version 1)
Quarter: 2013Q4

REPORT INFORMATION
  Report Type: Report from Study
  Country: BR (occurrence: BR)
  Receive Date: 20131024
  Receipt Date: 20131024
  Transmission Date: 20140711
  Serious: Yes (Other)
  Sender: FDA-Public Use
  Company Number: ALCN2013BR005323

PATIENT
  Age: 84 Year
  Sex: Female
  Weight: 60 kg

DRUGS (6)
  1. AZORGA [Suspect]
     Indication: GLAUCOMA
     Dosage: 1 GTT, BID
     Route: 047
     Dates: start: 2011
  2. TRAVATAN [Suspect]
     Indication: GLAUCOMA
     Dosage: 1 GTT, QHS
     Route: 047
     Dates: start: 201203
  3. DIOVAN HCT [Concomitant]
     Indication: HYPERTENSION
     Dosage: 12.5 MG, QD
     Route: 048
     Dates: start: 201203
  4. LABIRIN [Concomitant]
     Indication: LABYRINTHITIS
     Dosage: UNK, QD
     Route: 048
     Dates: start: 201305
  5. LORAZEPAM [Concomitant]
     Indication: INSOMNIA
     Dosage: UNK, QD
     Route: 048
     Dates: start: 201305
  6. LORAZEPAM [Concomitant]
     Indication: ANXIETY

REACTIONS (3)
  - Visual acuity reduced [Not Recovered/Not Resolved]
  - Visual impairment [Not Recovered/Not Resolved]
  - Hypoacusis [Not Recovered/Not Resolved]
